FAERS Safety Report 16217224 (Version 2)
Quarter: 2019Q2

REPORT INFORMATION
  Report Type: Spontaneous
  Country: BR (occurrence: BR)
  Receive Date: 20190419
  Receipt Date: 20190425
  Transmission Date: 20190711
  Serious: Yes (Other)
  Sender: FDA-Public Use
  Company Number: BR-AMGEN-BRASP2019059419

PATIENT
  Age: 77 Year
  Sex: Female

DRUGS (3)
  1. HYPER CVAD [Suspect]
     Active Substance: CYCLOPHOSPHAMIDE\CYTARABINE\DEXAMETHASONE\DOXORUBICIN\METHOTREXATE\VINCRISTINE
     Indication: B-CELL LYMPHOMA STAGE IV
     Dosage: UNK
     Route: 065
     Dates: start: 20190303
  2. FILGRASTIM [Suspect]
     Active Substance: FILGRASTIM
     Indication: PROPHYLAXIS
     Dosage: UNK
     Route: 065
     Dates: start: 20190303
  3. RITUXIMAB. [Suspect]
     Active Substance: RITUXIMAB
     Indication: B-CELL LYMPHOMA STAGE IV
     Dosage: UNK
     Route: 065
     Dates: start: 20190303

REACTIONS (5)
  - Pseudomonal sepsis [Recovered/Resolved]
  - Aplasia [Recovered/Resolved]
  - Mucosal inflammation [Not Recovered/Not Resolved]
  - Clostridium difficile colitis [Recovered/Resolved]
  - Intestinal perforation [Unknown]

NARRATIVE: CASE EVENT DATE: 201903
